FAERS Safety Report 14518941 (Version 1)
Quarter: 2018Q1

REPORT INFORMATION
  Report Type: Spontaneous
  Country: US (occurrence: US)
  Receive Date: 20180209
  Receipt Date: 20180209
  Transmission Date: 20180509
  Serious: Yes (Life-Threatening, Hospitalization)
  Sender: FDA-Public Use
  Company Number: None

PATIENT
  Age: 55 Year
  Sex: Female
  Weight: 67.6 kg

DRUGS (11)
  1. INSULIN LEVEMIR [Concomitant]
  2. PHENAZOPYRIDINE. [Concomitant]
     Active Substance: PHENAZOPYRIDINE
  3. OXYCODONE-ACETAMINOPHEN [Concomitant]
     Active Substance: ACETAMINOPHEN\OXYCODONE HYDROCHLORIDE
  4. INSULIN ASPART [Concomitant]
     Active Substance: INSULIN ASPART
  5. METFORMIN ER [Concomitant]
     Active Substance: METFORMIN HYDROCHLORIDE
  6. FLUOXETINE [Concomitant]
     Active Substance: FLUOXETINE HYDROCHLORIDE
  7. PRAVASTATIN. [Concomitant]
     Active Substance: PRAVASTATIN
  8. FLUCONAZOLE. [Concomitant]
     Active Substance: FLUCONAZOLE
  9. DOCUSATE SODIUM. [Concomitant]
     Active Substance: DOCUSATE SODIUM
  10. MTH-ME BLUE-SOD PHOS-PHSAL-HYO [Concomitant]
  11. EMPAGLIFLOZIN [Suspect]
     Active Substance: EMPAGLIFLOZIN
     Indication: TYPE 2 DIABETES MELLITUS
     Route: 048
     Dates: start: 20180118, end: 20180124

REACTIONS (13)
  - Pleural effusion [None]
  - Malaise [None]
  - Pneumonia [None]
  - Refusal of treatment by patient [None]
  - Influenza [None]
  - Atrial fibrillation [None]
  - Lethargy [None]
  - Unresponsive to stimuli [None]
  - Staphylococcal infection [None]
  - Ketoacidosis [None]
  - Therapy change [None]
  - Chest pain [None]
  - Metabolic acidosis [None]

NARRATIVE: CASE EVENT DATE: 20180118
